FAERS Safety Report 10140836 (Version 1)
Quarter: 2014Q2

REPORT INFORMATION
  Report Type: Spontaneous
  Country: NL (occurrence: NL)
  Receive Date: 20140429
  Receipt Date: 20140429
  Transmission Date: 20141212
  Serious: Yes (Hospitalization)
  Sender: FDA-Public Use
  Company Number: PHHY2014NL051050

PATIENT
  Sex: Female

DRUGS (2)
  1. CLOZAPINE [Suspect]
     Indication: PSYCHOTIC DISORDER
     Dosage: 100 MG, ONCE DAILY
     Dates: start: 20130927, end: 20140414
  2. DIPIPERON [Concomitant]
     Indication: PSYCHOTIC DISORDER
     Dosage: 40 MG, QD
     Dates: start: 20130927, end: 20140414

REACTIONS (2)
  - Mental disorder [Unknown]
  - Agranulocytosis [Recovered/Resolved]
